FAERS Safety Report 9494994 (Version 3)
Quarter: 2013Q3

REPORT INFORMATION
  Report Type: Spontaneous
  Country: JP (occurrence: JP)
  Receive Date: 20130903
  Receipt Date: 20130927
  Transmission Date: 20140515
  Serious: Yes (Life-Threatening, Hospitalization)
  Sender: FDA-Public Use
  Company Number: JP-BAYER-2013-103870

PATIENT
  Age: 46 Year
  Sex: Female
  Weight: 58 kg

DRUGS (9)
  1. YAZ [Suspect]
     Indication: DYSMENORRHOEA
     Dosage: 1 DF
     Route: 048
     Dates: start: 20120421
  2. TRANSAMIN [Suspect]
     Dosage: DAILY DOSE 750 MG
     Route: 048
  3. CINAL [ASCORBIC ACID,CALCIUM PANTOTHENATE] [Concomitant]
     Dosage: DAILY DOSE 3 G
     Route: 048
  4. MIRTAZAPIN [Concomitant]
     Dosage: DAILY DOSE 15 MG
     Route: 048
  5. BI SIFROL [Concomitant]
     Dosage: DAILY DOSE .125 MG
     Route: 048
  6. CERCINE [Concomitant]
     Dosage: DAILY DOSE 2 MG
     Route: 048
  7. LYRICA [Concomitant]
     Dosage: DAILY DOSE 25 MG
     Route: 048
  8. BROTIZOLAM [Concomitant]
     Dosage: UNK
     Route: 048
  9. DEPAS [Concomitant]
     Dosage: UNK
     Route: 048

REACTIONS (5)
  - Pulmonary embolism [Recovering/Resolving]
  - Deep vein thrombosis [Recovering/Resolving]
  - Loss of consciousness [Recovering/Resolving]
  - Syncope [Recovering/Resolving]
  - Shock [Recovering/Resolving]
